FAERS Safety Report 14455657 (Version 3)
Quarter: 2018Q4

REPORT INFORMATION
  Report Type: Report from Study
  Country: None (occurrence: US)
  Receive Date: 20180130
  Receipt Date: 20181210
  Transmission Date: 20190204
  Serious: Yes (Hospitalization, Other)
  Sender: FDA-Public Use
  Company Number: US-ABBVIE-17K-163-2120051-00

PATIENT
  Age: 78 Year
  Sex: Female

DRUGS (2)
  1. HUMIRA [Suspect]
     Active Substance: ADALIMUMAB
     Route: 058
  2. HUMIRA [Suspect]
     Active Substance: ADALIMUMAB
     Indication: RHEUMATOID ARTHRITIS
     Route: 058
     Dates: end: 2017

REACTIONS (11)
  - Post procedural complication [Recovering/Resolving]
  - Postoperative wound infection [Recovered/Resolved]
  - Clostridium difficile infection [Recovered/Resolved]
  - Stress [Not Recovered/Not Resolved]
  - Knee arthroplasty [Recovered/Resolved]
  - Post procedural cellulitis [Unknown]
  - Peripheral swelling [Recovering/Resolving]
  - Injection site pain [Recovering/Resolving]
  - Road traffic accident [Recovered/Resolved]
  - Injury [Recovering/Resolving]
  - Rheumatoid arthritis [Not Recovered/Not Resolved]

NARRATIVE: CASE EVENT DATE: 2017
